FAERS Safety Report 21697842 (Version 1)
Quarter: 2022Q4

REPORT INFORMATION
  Report Type: Spontaneous
  Country: JP (occurrence: JP)
  Receive Date: 20221208
  Receipt Date: 20221208
  Transmission Date: 20230112
  Serious: Yes (Other)
  Sender: FDA-Public Use
  Company Number: JP-SUN PHARMACEUTICAL INDUSTRIES LTD-2022RR-367271

PATIENT
  Age: 70 Year
  Sex: Female
  Weight: 39.8 kg

DRUGS (10)
  1. ASPIRIN [Suspect]
     Active Substance: ASPIRIN
     Indication: Primary biliary cholangitis
     Dosage: 100 MILLIGRAM, DAILY
     Route: 065
  2. BISOPROLOL [Suspect]
     Active Substance: BISOPROLOL
     Indication: Primary biliary cholangitis
     Dosage: 25 MILLIGRAM, DAILY
     Route: 065
  3. URSODIOL [Suspect]
     Active Substance: URSODIOL
     Indication: Primary biliary cholangitis
     Dosage: 600 MILLIGRAM, DAILY
     Route: 065
  4. FUROSEMIDE [Suspect]
     Active Substance: FUROSEMIDE
     Indication: Primary biliary cholangitis
     Dosage: 20 MILLIGRAM, DAILY
     Route: 042
  5. FUROSEMIDE [Suspect]
     Active Substance: FUROSEMIDE
     Dosage: 60 MILLIGRAM, DAILY
     Route: 042
  6. TOLVAPTAN [Suspect]
     Active Substance: TOLVAPTAN
     Indication: Primary biliary cholangitis
     Dosage: 7.5 MILLIGRAM, DAILY
     Route: 065
  7. WARFARIN [Concomitant]
     Active Substance: WARFARIN
     Indication: Primary biliary cholangitis
     Dosage: 2 MILLIGRAM, DAILY
     Route: 065
  8. EPLERENONE [Concomitant]
     Active Substance: EPLERENONE
     Indication: Primary biliary cholangitis
     Dosage: 25 MILLIGRAM, DAILY
     Route: 065
  9. isosorbide nitrate patch [Concomitant]
     Indication: Primary biliary cholangitis
     Dosage: 40 MILLIGRAM, DAILY
     Route: 065
  10. VONOPRAZAN [Concomitant]
     Active Substance: VONOPRAZAN
     Indication: Primary biliary cholangitis
     Dosage: 10 MILLIGRAM, DAILY
     Route: 065

REACTIONS (3)
  - Drug ineffective [Unknown]
  - Condition aggravated [Unknown]
  - Chylothorax [Unknown]
